FAERS Safety Report 5706930-2 (Version None)
Quarter: 2008Q2

REPORT INFORMATION
  Report Type: 
  Country: None (occurrence: None)
  Receive Date: 20080416
  Receipt Date: 20080404
  Transmission Date: 20081010
  Serious: Yes (Hospitalization)
  Sender: FDA-Public Use
  Company Number: FR-AMGEN-US269537

PATIENT
  Age: 50 Year
  Sex: Female

DRUGS (1)
  1. ENBREL [Suspect]
     Indication: ANKYLOSING SPONDYLITIS
     Dosage: UNKNOWN
     Route: 058
     Dates: start: 20030101

REACTIONS (5)
  - ABNORMAL BEHAVIOUR [None]
  - CONFUSIONAL STATE [None]
  - MANIA [None]
  - PERSONALITY CHANGE DUE TO A GENERAL MEDICAL CONDITION [None]
  - PSYCHOMOTOR SKILLS IMPAIRED [None]
